FAERS Safety Report 24841423 (Version 1)
Quarter: 2025Q1

REPORT INFORMATION
  Report Type: Spontaneous
  Country: US (occurrence: US)
  Receive Date: 20250114
  Receipt Date: 20250114
  Transmission Date: 20250409
  Serious: No
  Sender: JOHNSON AND JOHNSON
  Company Number: US-KENVUE-20250101552

PATIENT
  Age: 83 Year
  Sex: Female

DRUGS (3)
  1. TYLENOL [Suspect]
     Active Substance: ACETAMINOPHEN
     Indication: Migraine
     Route: 065
     Dates: start: 2024
  2. ORENITRAM [Concomitant]
     Active Substance: TREPROSTINIL
     Indication: Pulmonary arterial hypertension
     Dosage: 1 MG, 0.125 MG AND 0.25 MG, AND THE CURRENT DOSE WAS REPORTED AS 1.625 MG (1 TABLET OF 1 MG AND 0.12
     Route: 048
     Dates: start: 202408
  3. ORENITRAM [Concomitant]
     Active Substance: TREPROSTINIL
     Route: 048

REACTIONS (1)
  - Drug ineffective [Unknown]

NARRATIVE: CASE EVENT DATE: 20240101
